FAERS Safety Report 5918278-1 (Version None)
Quarter: 2008Q4

REPORT INFORMATION
  Report Type: 
  Country: None (occurrence: None)
  Receive Date: 20081010
  Receipt Date: 20080923
  Transmission Date: 20090506
  Serious: Yes (Hospitalization)
  Sender: FDA-Public Use
  Company Number: AZAUS200800327

PATIENT
  Age: 67 Year
  Sex: Female
  Weight: 78 kg

DRUGS (7)
  1. VIDAZA [Suspect]
     Indication: ACUTE MYELOID LEUKAEMIA
     Dosage: 75 MG/M2, DAILY X 7 DAYS), INTRAVENOUS
     Route: 042
     Dates: start: 20080804, end: 20080812
  2. METFORMIN HCL [Concomitant]
  3. LEXAPRO [Concomitant]
  4. FAMVIR [Concomitant]
  5. DIFLUCAN [Concomitant]
  6. AVELOX [Concomitant]
  7. NEULASTA (PEGIFLGRASTIM) [Concomitant]

REACTIONS (4)
  - ASTHENIA [None]
  - CHEST DISCOMFORT [None]
  - FEBRILE NEUTROPENIA [None]
  - PNEUMONIA RESPIRATORY SYNCYTIAL VIRAL [None]
